FAERS Safety Report 18518257 (Version 5)
Quarter: 2021Q3

REPORT INFORMATION
  Report Type: Spontaneous
  Country: US (occurrence: US)
  Receive Date: 20201118
  Receipt Date: 20210714
  Transmission Date: 20211014
  Serious: Yes (Hospitalization, Other)
  Sender: FDA-Public Use
  Company Number: US-SK LIFE SCIENCE, INC-SKPVG-2020-000622

PATIENT

DRUGS (8)
  1. XCOPRI [Suspect]
     Active Substance: CENOBAMATE
     Indication: EPILEPSY
     Dosage: 12.5 MILLIGRAM, QD, 4 DOSES
     Route: 048
     Dates: start: 20201021, end: 20201025
  2. ACETAMINOPHEN. [Concomitant]
     Active Substance: ACETAMINOPHEN
     Indication: PRODUCT USED FOR UNKNOWN INDICATION
     Dosage: UNK
     Route: 065
     Dates: start: 20201022, end: 20201024
  3. FYCOMPA [Concomitant]
     Active Substance: PERAMPANEL
     Indication: AURA
  4. ATIVAN [Concomitant]
     Active Substance: LORAZEPAM
     Indication: SEIZURE
     Dosage: 1 MILLIGRAM, Q6H, 1 TAB, AS NEEDED
     Route: 048
  5. BRIVIACT [Concomitant]
     Active Substance: BRIVARACETAM
     Indication: AURA
     Dosage: 75 MILLIGRAM, BID, 1 TAB
     Route: 048
     Dates: start: 20180327, end: 20201024
  6. BRIVIACT [Concomitant]
     Active Substance: BRIVARACETAM
     Indication: PARTIAL SEIZURES
  7. LAMICTAL [Concomitant]
     Active Substance: LAMOTRIGINE
     Indication: PRODUCT USED FOR UNKNOWN INDICATION
     Dosage: 300 MILLIGRAM, BID, 1 TAB
     Route: 048
  8. FYCOMPA [Concomitant]
     Active Substance: PERAMPANEL
     Indication: PARTIAL SEIZURES
     Dosage: 6 MILLIGRAM, QHS, TAB
     Route: 048

REACTIONS (15)
  - Thrombocytopenia [Recovered/Resolved]
  - Pyrexia [Recovered/Resolved]
  - Dizziness [Recovered/Resolved]
  - Hypotension [Recovered/Resolved]
  - Lip swelling [Recovered/Resolved]
  - Gingival swelling [Recovered/Resolved]
  - Lethargy [Recovered/Resolved]
  - Bradycardia [Recovered/Resolved]
  - Leukopenia [Recovered/Resolved]
  - Presyncope [Recovered/Resolved]
  - Hyperhidrosis [Recovered/Resolved]
  - Ocular discomfort [Recovered/Resolved]
  - Asthenia [Recovered/Resolved]
  - Eye pain [Recovered/Resolved]
  - Oral pain [Recovered/Resolved]

NARRATIVE: CASE EVENT DATE: 20201022
